FAERS Safety Report 4970880-X (Version None)
Quarter: 2006Q2

REPORT INFORMATION
  Report Type: 
  Country: None (occurrence: None)
  Receive Date: 20060411
  Receipt Date: 20060411
  Transmission Date: 20061013
  Serious: No
  Sender: FDA-Public Use
  Company Number: None

PATIENT
  Sex: Female
  Weight: 71.36 kg

DRUGS (1)
  1. TEMOZOLOMIDE  130 MG [Suspect]
     Indication: NEOPLASM
     Dosage: 130 MG
     Dates: start: 20060227, end: 20060331

REACTIONS (1)
  - PLATELET COUNT DECREASED [None]
